FAERS Safety Report 10250563 (Version 4)
Quarter: 2014Q4

REPORT INFORMATION
  Report Type: Spontaneous
  Country: US (occurrence: US)
  Receive Date: 20140620
  Receipt Date: 20141028
  Transmission Date: 20150528
  Serious: Yes (Other)
  Sender: FDA-Public Use
  Company Number: US-GLAXOSMITHKLINE-A1077346A

PATIENT
  Age: 69 Year
  Sex: Female

DRUGS (30)
  1. ADVAIR DISKUS [Suspect]
     Active Substance: FLUTICASONE PROPIONATE\SALMETEROL XINAFOATE
     Indication: CHRONIC OBSTRUCTIVE PULMONARY DISEASE
  2. LISINOPRIL-HYDROCHLOROTHIAZIDE [Concomitant]
     Active Substance: HYDROCHLOROTHIAZIDE\LISINOPRIL
  3. XANAX [Concomitant]
     Active Substance: ALPRAZOLAM
  4. KLOR-CON [Concomitant]
     Active Substance: POTASSIUM CHLORIDE
  5. DOXYCYCLINE. [Concomitant]
     Active Substance: DOXYCYCLINE
  6. BENTYL [Concomitant]
     Active Substance: DICYCLOMINE HYDROCHLORIDE
  7. CENTRUM VITAMINS [Concomitant]
  8. SINGULAIR [Concomitant]
     Active Substance: MONTELUKAST SODIUM
  9. PREDNISONE. [Concomitant]
     Active Substance: PREDNISONE
  10. ALBUTEROL NEBULIZER [Concomitant]
     Active Substance: ALBUTEROL
  11. ADVAIR DISKUS [Suspect]
     Active Substance: FLUTICASONE PROPIONATE\SALMETEROL XINAFOATE
     Indication: EMPHYSEMA
     Dosage: 1 PUFF(S), BID
  12. MUCINEX [Concomitant]
     Active Substance: GUAIFENESIN
  13. SPIRIVA [Concomitant]
     Active Substance: TIOTROPIUM BROMIDE MONOHYDRATE
  14. NORVASC [Concomitant]
     Active Substance: AMLODIPINE BESYLATE
  15. DALIRESP [Concomitant]
     Active Substance: ROFLUMILAST
  16. ZINC [Concomitant]
     Active Substance: ZINC\ZINC CHLORIDE
  17. OXYGEN. [Concomitant]
     Active Substance: OXYGEN
  18. PROAIR HFA [Concomitant]
     Active Substance: ALBUTEROL SULFATE
  19. LOMOTIL [Concomitant]
     Active Substance: ATROPINE SULFATE\DIPHENOXYLATE HYDROCHLORIDE
  20. CLONIDINE. [Concomitant]
     Active Substance: CLONIDINE
  21. THEOPHYLLINE [Concomitant]
     Active Substance: THEOPHYLLINE ANHYDROUS
  22. BUSPAR [Concomitant]
     Active Substance: BUSPIRONE HYDROCHLORIDE
  23. PREVACID [Concomitant]
     Active Substance: LANSOPRAZOLE
  24. ALLEGRA [Concomitant]
     Active Substance: FEXOFENADINE HYDROCHLORIDE
  25. NYSTATIN. [Concomitant]
     Active Substance: NYSTATIN
  26. ALBUTEROL INHALER [Concomitant]
     Active Substance: ALBUTEROL
  27. LISINOPRIL. [Concomitant]
     Active Substance: LISINOPRIL
  28. DIFLUCAN [Concomitant]
     Active Substance: FLUCONAZOLE
  29. VITAMIN B12 [Concomitant]
     Active Substance: CYANOCOBALAMIN
  30. ESTRADIOL. [Concomitant]
     Active Substance: ESTRADIOL

REACTIONS (6)
  - Middle ear effusion [Unknown]
  - Deafness unilateral [Recovered/Resolved]
  - Ear infection [Unknown]
  - Ill-defined disorder [Unknown]
  - Sinusitis [Unknown]
  - Dyspnoea [Unknown]

NARRATIVE: CASE EVENT DATE: 201312
